FAERS Safety Report 14374767 (Version 1)
Quarter: 2018Q1

REPORT INFORMATION
  Report Type: Spontaneous
  Country: US (occurrence: US)
  Receive Date: 20180110
  Receipt Date: 20180110
  Transmission Date: 20180509
  Serious: Yes (Hospitalization, Disabling, Other)
  Sender: FDA-Public Use
  Company Number: None

PATIENT
  Sex: Female
  Weight: 76.5 kg

DRUGS (2)
  1. POLYMYXIN B SULFATE AND TRIMETHOPRIM [Suspect]
     Active Substance: POLYMYXIN B SULFATE\TRIMETHOPRIM SULFATE
     Indication: CONJUNCTIVITIS BACTERIAL
     Route: 047
     Dates: start: 20180108, end: 20180108
  2. BENADRYL [Concomitant]
     Active Substance: DIPHENHYDRAMINE HYDROCHLORIDE

REACTIONS (8)
  - Eye swelling [None]
  - Eye pain [None]
  - Impaired work ability [None]
  - Ocular hyperaemia [None]
  - Rash erythematous [None]
  - Rash [None]
  - Eye oedema [None]
  - Visual impairment [None]

NARRATIVE: CASE EVENT DATE: 20180108
